FAERS Safety Report 23571225 (Version 1)
Quarter: 2024Q1

REPORT INFORMATION
  Report Type: Spontaneous
  Country: US (occurrence: None)
  Receive Date: 20240227
  Receipt Date: 20240227
  Transmission Date: 20240410
  Serious: Yes (Death)
  Sender: FDA-Public Use
  Company Number: None

PATIENT
  Sex: Male

DRUGS (4)
  1. PROLIA [Suspect]
     Active Substance: DENOSUMAB
     Indication: Osteoarthritis
     Route: 058
     Dates: start: 20180928
  2. FUROSEMIDE [Concomitant]
  3. ONDANSETRON TAB 4MG ODT [Concomitant]
  4. REXULTI TAB 1MG [Concomitant]

REACTIONS (1)
  - Cardiac failure congestive [None]
